FAERS Safety Report 8814877 (Version 1)
Quarter: 2012Q4

REPORT INFORMATION
  Report Type: 
  Country: US (occurrence: US)
  Receive Date: 20120928
  Receipt Date: 20120928
  Transmission Date: 20130627
  Serious: No
  Sender: FDA-Public Use
  Company Number: US-MUTUAL PHARMACEUTICAL COMPANY, INC.-QLQN20110006

PATIENT
  Age: 7 None
  Sex: Male

DRUGS (1)
  1. QUALAQUIN [Suspect]
     Indication: LEG CRAMPS
     Route: 065

REACTIONS (2)
  - Off label use [None]
  - Hyperhidrosis [Unknown]
